FAERS Safety Report 9143312 (Version 1)
Quarter: 2013Q1

REPORT INFORMATION
  Report Type: Spontaneous
  Country: SE (occurrence: SE)
  Receive Date: 20130306
  Receipt Date: 20130306
  Transmission Date: 20140127
  Serious: Yes (Hospitalization)
  Sender: FDA-Public Use
  Company Number: PHHY2013SE019961

PATIENT
  Age: 77 Year
  Sex: Male

DRUGS (8)
  1. EXELON [Suspect]
     Dosage: 2 DF, DAILY
     Dates: start: 20120127, end: 20130220
  2. CITALOPRAM ARROW [Concomitant]
     Dosage: 20 MG
  3. SIMVASTATIN [Concomitant]
  4. WARAN [Concomitant]
     Dosage: 2.5 MG
  5. BEHEPAN [Concomitant]
     Dosage: 1 MG
  6. IMPUGAN [Concomitant]
     Dosage: 40 MG
  7. IMDUR [Concomitant]
     Dosage: 60 MG
  8. SELOKEN ZOC [Concomitant]

REACTIONS (8)
  - Dementia [Unknown]
  - Diabetes mellitus [Recovered/Resolved with Sequelae]
  - Nightmare [Recovered/Resolved with Sequelae]
  - Amnesia [Recovered/Resolved with Sequelae]
  - Muscle spasms [Recovered/Resolved with Sequelae]
  - Convulsion [Recovered/Resolved with Sequelae]
  - Confusional state [Recovered/Resolved with Sequelae]
  - Anxiety [Recovered/Resolved with Sequelae]
